FAERS Safety Report 6304547-2 (Version None)
Quarter: 2009Q3

REPORT INFORMATION
  Report Type: 
  Country: None (occurrence: None)
  Receive Date: 20090811
  Receipt Date: 20090810
  Transmission Date: 20100115
  Serious: No
  Sender: FDA-Public Use
  Company Number: US-B.I. PHARMACEUTICALS,INC./RIDGEFIELD-2009-BP-05725BP

PATIENT
  Sex: Female

DRUGS (3)
  1. SPIRIVA [Suspect]
     Indication: ASTHMA
     Dosage: 18 MCG
     Route: 055
  2. ADVAIR HFA [Concomitant]
     Indication: ASTHMA
  3. PROAIR HFA [Concomitant]
     Indication: ASTHMA
     Route: 055

REACTIONS (1)
  - DYSPNOEA [None]
